FAERS Safety Report 7781483-6 (Version None)
Quarter: 2011Q3

REPORT INFORMATION
  Report Type: 
  Country: None (occurrence: None)
  Receive Date: 20110927
  Receipt Date: 20110303
  Transmission Date: 20111222
  Serious: No
  Sender: FDA-Public Use
  Company Number: US-BAYER-2011-022431

PATIENT
  Age: 46 Year
  Sex: Female
  Weight: 86 kg

DRUGS (2)
  1. ALEVE (CAPLET) [Suspect]
     Indication: BACK PAIN
     Dosage: 2 TABS
     Route: 048
     Dates: start: 20110303
  2. IBUPROFEN (ADVIL) [Interacting]
     Indication: BACK PAIN
     Dosage: 1 TAB
     Route: 048
     Dates: start: 20110303

REACTIONS (2)
  - DRUG INTERACTION [None]
  - SOMNOLENCE [None]
